FAERS Safety Report 17593431 (Version 2)
Quarter: 2021Q2

REPORT INFORMATION
  Report Type: Spontaneous
  Country: US (occurrence: US)
  Receive Date: 20200327
  Receipt Date: 20210616
  Transmission Date: 20210716
  Serious: Yes (Other)
  Sender: FDA-Public Use
  Company Number: US-ASTRAZENECA-2020SE40507

PATIENT
  Age: 19031 Day
  Sex: Female
  Weight: 65.3 kg

DRUGS (36)
  1. NYSTATIN. [Concomitant]
     Active Substance: NYSTATIN
  2. SINGULAIR [Concomitant]
     Active Substance: MONTELUKAST SODIUM
  3. ZOLOFT [Concomitant]
     Active Substance: SERTRALINE HYDROCHLORIDE
  4. BUPROPION. [Concomitant]
     Active Substance: BUPROPION
  5. GABAPENTIN. [Concomitant]
     Active Substance: GABAPENTIN
  6. HYDROXYZINE [Concomitant]
     Active Substance: HYDROXYZINE HYDROCHLORIDE
  7. METHYLPREDNISOLONE. [Concomitant]
     Active Substance: METHYLPREDNISOLONE
  8. JANUVIA [Concomitant]
     Active Substance: SITAGLIPTIN PHOSPHATE
  9. LORATADINE. [Concomitant]
     Active Substance: LORATADINE
  10. LOVASTATIN. [Concomitant]
     Active Substance: LOVASTATIN
  11. NEXIUM 24HR [Suspect]
     Active Substance: ESOMEPRAZOLE MAGNESIUM
     Indication: GASTROOESOPHAGEAL REFLUX DISEASE
     Route: 048
     Dates: start: 2014, end: 2017
  12. HYOSCYAMINE. [Concomitant]
     Active Substance: HYOSCYAMINE
  13. FLUTICASONE. [Concomitant]
     Active Substance: FLUTICASONE
  14. TERCONAZOLE. [Concomitant]
     Active Substance: TERCONAZOLE
  15. METRONIDAZOLE. [Concomitant]
     Active Substance: METRONIDAZOLE
  16. BYETTA [Concomitant]
     Active Substance: EXENATIDE
  17. GLUCAGON. [Concomitant]
     Active Substance: GLUCAGON
  18. DIAZEPAM. [Concomitant]
     Active Substance: DIAZEPAM
  19. SODIUM CHLORIDE. [Concomitant]
     Active Substance: SODIUM CHLORIDE
  20. NEXIUM [Suspect]
     Active Substance: ESOMEPRAZOLE MAGNESIUM
     Indication: GASTROOESOPHAGEAL REFLUX DISEASE
     Route: 048
     Dates: start: 200403, end: 201601
  21. NEXIUM [Suspect]
     Active Substance: ESOMEPRAZOLE MAGNESIUM
     Indication: GASTROOESOPHAGEAL REFLUX DISEASE
     Route: 048
     Dates: start: 2004, end: 2017
  22. CYCLOBENZAPRINE. [Concomitant]
     Active Substance: CYCLOBENZAPRINE
  23. VOLTAREN [Concomitant]
     Active Substance: DICLOFENAC SODIUM
  24. BUDESONIDE. [Concomitant]
     Active Substance: BUDESONIDE
  25. PREVACID [Suspect]
     Active Substance: LANSOPRAZOLE
     Indication: GASTROOESOPHAGEAL REFLUX DISEASE
     Route: 065
     Dates: start: 2004, end: 2017
  26. TRAMADOL HYDROCHLORIDE. [Concomitant]
     Active Substance: TRAMADOL HYDROCHLORIDE
  27. CYMBALTA [Concomitant]
     Active Substance: DULOXETINE HYDROCHLORIDE
  28. LISINOPRIL. [Concomitant]
     Active Substance: LISINOPRIL
  29. SENNA [Concomitant]
     Active Substance: SENNA LEAF\SENNOSIDES\SENNOSIDES A AND B
  30. DIPHENHYDRAMINE. [Concomitant]
     Active Substance: DIPHENHYDRAMINE
  31. MAGNESIUM SULFATE. [Concomitant]
     Active Substance: MAGNESIUM SULFATE
  32. NEXIUM 24HR [Suspect]
     Active Substance: ESOMEPRAZOLE MAGNESIUM
     Indication: GASTROOESOPHAGEAL REFLUX DISEASE
     Route: 048
     Dates: start: 200403, end: 201601
  33. PREVACID [Suspect]
     Active Substance: LANSOPRAZOLE
     Indication: GASTROOESOPHAGEAL REFLUX DISEASE
     Route: 065
     Dates: start: 200403, end: 201601
  34. FLUCONAZOLE. [Concomitant]
     Active Substance: FLUCONAZOLE
  35. CARISOPRODOL. [Concomitant]
     Active Substance: CARISOPRODOL
  36. DOCUSATE [Concomitant]
     Active Substance: DOCUSATE

REACTIONS (6)
  - Chronic kidney disease [Not Recovered/Not Resolved]
  - Acute kidney injury [Not Recovered/Not Resolved]
  - Renal failure [Unknown]
  - Metabolic acidosis [Unknown]
  - Renal tubular necrosis [Unknown]
  - End stage renal disease [Unknown]

NARRATIVE: CASE EVENT DATE: 20180318
